FAERS Safety Report 10368617 (Version 1)
Quarter: 2014Q3

REPORT INFORMATION
  Report Type: Spontaneous
  Country: US (occurrence: None)
  Receive Date: 20140806
  Receipt Date: 20140806
  Transmission Date: 20150326
  Serious: No
  Sender: FDA-Public Use
  Company Number: None

PATIENT
  Age: 54 Year
  Sex: Male

DRUGS (10)
  1. MORPHINE [Concomitant]
     Active Substance: MORPHINE
  2. FLUTICASONE [Concomitant]
     Active Substance: FLUTICASONE\FLUTICASONE PROPIONATE
  3. LISINOPRIL. [Concomitant]
     Active Substance: LISINOPRIL
  4. XELJANZ [Suspect]
     Active Substance: TOFACITINIB CITRATE
     Indication: RHEUMATOID ARTHRITIS
     Route: 048
     Dates: start: 20130817
  5. NOVOLOG [Concomitant]
     Active Substance: INSULIN ASPART
  6. DUTASTERIDE [Concomitant]
     Active Substance: DUTASTERIDE
  7. ATORVASTATIN [Concomitant]
     Active Substance: ATORVASTATIN
  8. EZETIMIBE. [Concomitant]
     Active Substance: EZETIMIBE
  9. ASPIRIN. [Concomitant]
     Active Substance: ASPIRIN
  10. CARVEDILOL. [Concomitant]
     Active Substance: CARVEDILOL

REACTIONS (1)
  - Fatigue [None]

NARRATIVE: CASE EVENT DATE: 20140805
